FAERS Safety Report 9073701 (Version 2)
Quarter: 2013Q1

REPORT INFORMATION
  Report Type: Spontaneous
  Country: GB (occurrence: GB)
  Receive Date: 20130216
  Receipt Date: 20130303
  Transmission Date: 20140127
  Serious: Yes (Other)
  Sender: FDA-Public Use
  Company Number: GB-US-EMD SERONO, INC.-7193101

PATIENT
  Sex: Female

DRUGS (1)
  1. SAIZEN [Suspect]
     Indication: PRODUCT USED FOR UNKNOWN INDICATION
     Route: 058
     Dates: start: 20041222

REACTIONS (9)
  - Memory impairment [Unknown]
  - Cardiac disorder [Unknown]
  - Vaginal discharge [Unknown]
  - Polyuria [Unknown]
  - Nocturia [Unknown]
  - Blood cholesterol increased [Unknown]
  - Acanthosis nigricans [Unknown]
  - Appendicectomy [Unknown]
  - Obesity [Unknown]
